FAERS Safety Report 5118039-X (Version None)
Quarter: 2006Q3

REPORT INFORMATION
  Report Type: 
  Country: None (occurrence: None)
  Receive Date: 20060929
  Receipt Date: 20060822
  Transmission Date: 20061208
  Serious: Yes (Other)
  Sender: FDA-Public Use
  Company Number: FR-ROXANE LABORATORIES, INC-2006-DE-04396GD

PATIENT
  Age: 26 Year
  Sex: Female

DRUGS (4)
  1. PREDNISONE [Suspect]
     Indication: MASTITIS
  2. PREDNISONE [Suspect]
     Indication: GRANULOMA
  3. METHOTREXATE [Suspect]
     Indication: MASTITIS
     Dosage: 15 MG/WEEK
  4. METHOTREXATE [Suspect]
     Indication: GRANULOMA

REACTIONS (7)
  - ARTHRALGIA [None]
  - CORYNEBACTERIUM INFECTION [None]
  - DRUG DEPENDENCE [None]
  - DRUG INEFFECTIVE [None]
  - FISTULA [None]
  - MASTITIS [None]
  - SCAR [None]
